FAERS Safety Report 8033405-0 (Version None)
Quarter: 2012Q1

REPORT INFORMATION
  Report Type: 
  Country: None (occurrence: None)
  Receive Date: 20120110
  Receipt Date: 20120105
  Transmission Date: 20120608
  Serious: Yes (Hospitalization, Other)
  Sender: FDA-Public Use
  Company Number: PHFR2011GB05035

PATIENT
  Sex: Male

DRUGS (2)
  1. CLOZARIL [Suspect]
     Indication: SCHIZOPHRENIA
     Dosage: 25 MG MOR 100 MG NIGHT
     Route: 048
     Dates: start: 20110812
  2. LITHIUM [Concomitant]
     Dosage: ONCE DAILY
     Route: 048

REACTIONS (4)
  - TACHYCARDIA [None]
  - MENTAL IMPAIRMENT [None]
  - ELECTROCARDIOGRAM ABNORMAL [None]
  - HEART RATE INCREASED [None]
